FAERS Safety Report 6929951-0 (Version None)
Quarter: 2010Q3

REPORT INFORMATION
  Report Type: 
  Country: None (occurrence: None)
  Receive Date: 20100818
  Receipt Date: 20100809
  Transmission Date: 20110219
  Serious: Yes (Death)
  Sender: FDA-Public Use
  Company Number: JP-AMGEN-QUU427253

PATIENT
  Age: 54 Year
  Sex: Female

DRUGS (3)
  1. ENBREL [Suspect]
     Indication: RHEUMATOID ARTHRITIS
     Route: 058
     Dates: start: 20060306, end: 20070818
  2. ISCOTIN [Concomitant]
     Route: 048
  3. METHOTREXATE [Concomitant]
     Route: 048

REACTIONS (1)
  - UTERINE CANCER [None]
